FAERS Safety Report 17611415 (Version 3)
Quarter: 2020Q3

REPORT INFORMATION
  Report Type: Spontaneous
  Country: US (occurrence: US)
  Receive Date: 20200401
  Receipt Date: 20200807
  Transmission Date: 20201102
  Serious: Yes (Death, Hospitalization, Other)
  Sender: FDA-Public Use
  Company Number: US-ASTRAZENECA-2020SE43970

PATIENT
  Age: 747 Month
  Sex: Female
  Weight: 116 kg

DRUGS (64)
  1. ONGLYZA [Suspect]
     Active Substance: SAXAGLIPTIN HYDROCHLORIDE
     Indication: TYPE 2 DIABETES MELLITUS
     Route: 048
     Dates: start: 201211
  2. PRILOSEC [Concomitant]
     Active Substance: OMEPRAZOLE MAGNESIUM
     Dosage: EXTENDED RELEASE40.0MG UNKNOWN
     Route: 048
  3. PROTONIX [Concomitant]
     Active Substance: PANTOPRAZOLE SODIUM
     Dosage: EXTENDED RELEASE40.0MG UNKNOWN
     Route: 048
  4. PROMETHAZINE [Concomitant]
     Active Substance: PROMETHAZINE HYDROCHLORIDE
     Dosage: 6.25MG/ 5ML
     Route: 048
  5. ASPIRIN. [Concomitant]
     Active Substance: ASPIRIN
     Dosage: DELAYED RELEASE
     Route: 048
     Dates: start: 20161213
  6. CARDIZEM [Concomitant]
     Active Substance: DILTIAZEM HYDROCHLORIDE
     Dosage: EXTENDED RELEASE
     Route: 048
     Dates: start: 20161213
  7. ADVAIR HFA [Concomitant]
     Active Substance: FLUTICASONE PROPIONATE\SALMETEROL XINAFOATE
     Dosage: 1.0MG UNKNOWN
     Route: 048
     Dates: start: 20161213
  8. COMBIVENT [Concomitant]
     Active Substance: ALBUTEROL SULFATE\IPRATROPIUM BROMIDE
     Dosage: 1.0MG UNKNOWN
     Route: 048
     Dates: start: 20161213
  9. FLUTCASONE [Concomitant]
     Dosage: 1.0MG UNKNOWN
     Route: 048
     Dates: start: 20161213
  10. FUROSEMIDE. [Concomitant]
     Active Substance: FUROSEMIDE
     Dosage: 1.0MG UNKNOWN
     Route: 048
     Dates: start: 20161213
  11. NYSTATIN. [Concomitant]
     Active Substance: NYSTATIN
     Dosage: 1.0MG UNKNOWN
     Route: 048
     Dates: start: 20161213
  12. LEVALBUTEROL. [Concomitant]
     Active Substance: LEVALBUTEROL
     Dosage: 1.0MG UNKNOWN
     Route: 048
     Dates: start: 20161213
  13. HUMALOG [Concomitant]
     Active Substance: INSULIN LISPRO
     Dosage: 100 UNIT/ML
     Route: 057
     Dates: start: 20161213
  14. LATANOPROST. [Concomitant]
     Active Substance: LATANOPROST
     Dosage: 0.005%
     Route: 047
     Dates: start: 20161213
  15. SENOKOT [Concomitant]
     Active Substance: SENNOSIDES
     Dosage: 8.6MG UNKNOWN
     Route: 048
     Dates: start: 20161213
  16. ALPRAZOLAM. [Concomitant]
     Active Substance: ALPRAZOLAM
     Dosage: 1.0MG UNKNOWN
     Route: 048
     Dates: start: 20161213
  17. LORATADINE. [Concomitant]
     Active Substance: LORATADINE
     Dosage: 1.0MG UNKNOWN
     Route: 048
     Dates: start: 20161213
  18. TOBRAMYCIN. [Concomitant]
     Active Substance: TOBRAMYCIN
     Dosage: 1.0MG UNKNOWN
     Route: 048
     Dates: start: 20161213
  19. GUAIFENESIN. [Concomitant]
     Active Substance: GUAIFENESIN
     Dosage: 1.0MG UNKNOWN
     Route: 048
     Dates: start: 20161213
  20. ONGLYZA [Suspect]
     Active Substance: SAXAGLIPTIN HYDROCHLORIDE
     Indication: TYPE 2 DIABETES MELLITUS
     Dosage: 2.5MG UNKNOWN
     Route: 048
     Dates: start: 20121106
  21. DILTIAZEM. [Concomitant]
     Active Substance: DILTIAZEM
     Dosage: 180 MG/24 HOURS EXTENDED RELEASE
     Route: 048
  22. PLAVIX [Concomitant]
     Active Substance: CLOPIDOGREL BISULFATE
     Dosage: 75.0MG UNKNOWN
     Route: 048
  23. ASMANEX [Concomitant]
     Active Substance: MOMETASONE FUROATE
     Dosage: 1.0MG UNKNOWN
     Route: 048
     Dates: start: 20161213
  24. IPRATROPIUM [Concomitant]
     Active Substance: IPRATROPIUM
     Dosage: 1.0MG UNKNOWN
     Route: 048
     Dates: start: 20161213
  25. AMLODIPINE [Concomitant]
     Active Substance: AMLODIPINE BESYLATE
     Route: 048
  26. ZITHROMAX [Concomitant]
     Active Substance: AZITHROMYCIN DIHYDRATE
     Dosage: 10.0MG UNKNOWN
     Route: 048
  27. COMBIVENT RESPIMAT [Concomitant]
     Active Substance: ALBUTEROL SULFATE\IPRATROPIUM BROMIDE
     Dosage: 20?100 MCG/ACT? TWO TIMES A DAY
     Route: 048
     Dates: start: 20161213
  28. LORATADINE. [Concomitant]
     Active Substance: LORATADINE
     Route: 048
     Dates: start: 20161213
  29. LATANOPROST. [Concomitant]
     Active Substance: LATANOPROST
     Dosage: 1.0MG UNKNOWN
     Route: 048
     Dates: start: 20161213
  30. QVAR [Concomitant]
     Active Substance: BECLOMETHASONE DIPROPIONATE
     Dosage: 1.0MG UNKNOWN
     Route: 048
     Dates: start: 20161213
  31. CROMOLYN [Concomitant]
     Active Substance: CROMOLYN
     Dosage: 1.0MG UNKNOWN
     Route: 048
     Dates: start: 20161213
  32. ONGLYZA [Suspect]
     Active Substance: SAXAGLIPTIN HYDROCHLORIDE
     Indication: TYPE 2 DIABETES MELLITUS
     Dosage: 5.0MG UNKNOWN
     Route: 048
     Dates: start: 201209, end: 2018
  33. SUCRALFATE. [Concomitant]
     Active Substance: SUCRALFATE
     Dosage: 1.0MG UNKNOWN
     Route: 048
     Dates: start: 20161213
  34. DALIRESP [Concomitant]
     Active Substance: ROFLUMILAST
     Dosage: 1.0MG UNKNOWN
     Route: 048
     Dates: start: 20161213
  35. ENDOCET [Concomitant]
     Active Substance: ACETAMINOPHEN\OXYCODONE HYDROCHLORIDE
     Dosage: 1.0MG UNKNOWN
     Route: 048
     Dates: start: 20161213
  36. ONDASETRON [Concomitant]
     Active Substance: ONDANSETRON
     Dosage: 1.0MG UNKNOWN
     Route: 048
     Dates: start: 20161213
  37. ATORVASTATIN [Concomitant]
     Active Substance: ATORVASTATIN
     Dosage: 1.0MG UNKNOWN
     Route: 048
     Dates: start: 20161213
  38. EPINEPHRINE. [Concomitant]
     Active Substance: EPINEPHRINE
     Dosage: 1.0MG UNKNOWN
     Route: 048
     Dates: start: 20161213
  39. XANAX [Concomitant]
     Active Substance: ALPRAZOLAM
     Dosage: 0.5MG UNKNOWN
     Route: 048
  40. IRON [Concomitant]
     Active Substance: IRON
     Dosage: 45 FE? DAILY
     Route: 048
     Dates: start: 20161213
  41. MIRTAZAPINE. [Concomitant]
     Active Substance: MIRTAZAPINE
     Route: 048
     Dates: start: 20161213
  42. PROMETHAZINE [Concomitant]
     Active Substance: PROMETHAZINE HYDROCHLORIDE
     Dosage: 1.0MG UNKNOWN
     Route: 048
     Dates: start: 20161213
  43. ALENDRONATE [Concomitant]
     Active Substance: ALENDRONATE SODIUM
     Dosage: 1.0MG UNKNOWN
     Route: 048
     Dates: start: 20161213
  44. SPIRIVA [Concomitant]
     Active Substance: TIOTROPIUM BROMIDE MONOHYDRATE
     Dosage: 1.0MG UNKNOWN
     Route: 048
     Dates: start: 20161213
  45. HYDROXYZINE [Concomitant]
     Active Substance: HYDROXYZINE HYDROCHLORIDE
     Dosage: 1.0MG UNKNOWN
     Route: 048
     Dates: start: 20161213
  46. DILTIAZEM. [Concomitant]
     Active Substance: DILTIAZEM
     Dosage: 1.0MG UNKNOWN
     Route: 048
     Dates: start: 20161213
  47. CLOPIDOGREL [Concomitant]
     Active Substance: CLOPIDOGREL BISULFATE
     Dosage: 1.0MG UNKNOWN
     Route: 048
     Dates: start: 20161213
  48. CETRIZINE [Concomitant]
     Active Substance: CETIRIZINE HYDROCHLORIDE
     Dosage: 1.0MG UNKNOWN
     Route: 048
     Dates: start: 20161213
  49. TRIAMCINOLON [Concomitant]
     Dosage: 1.0MG UNKNOWN
     Route: 048
     Dates: start: 20161213
  50. MUPIROCIN. [Concomitant]
     Active Substance: MUPIROCIN
     Dosage: 1.0MG UNKNOWN
     Route: 048
     Dates: start: 20161213
  51. CELECOXIB. [Concomitant]
     Active Substance: CELECOXIB
     Dosage: 1.0MG UNKNOWN
     Route: 048
     Dates: start: 20161213
  52. AZITHROMYCIN ANHYDROUS. [Concomitant]
     Active Substance: AZITHROMYCIN ANHYDROUS
     Dosage: 1.0MG UNKNOWN
     Route: 048
     Dates: start: 20161213
  53. EPIPEN [Concomitant]
     Active Substance: EPINEPHRINE
     Dosage: 1.0MG UNKNOWN
     Route: 048
     Dates: start: 20161213
  54. KETOTIFEN [Concomitant]
     Active Substance: KETOTIFEN
     Dosage: 1.0MG UNKNOWN
     Route: 048
     Dates: start: 20161213
  55. MONTELUKAST [Concomitant]
     Active Substance: MONTELUKAST SODIUM
     Dosage: 1.0MG UNKNOWN
     Route: 048
     Dates: start: 20161213
  56. ALOGLIPTIN. [Concomitant]
     Active Substance: ALOGLIPTIN
     Dosage: 1.0MG UNKNOWN
     Route: 048
     Dates: start: 20161213
  57. MUPIROCIN. [Concomitant]
     Active Substance: MUPIROCIN
     Dosage: 1.0MG UNKNOWN
     Route: 048
     Dates: start: 20161213
  58. SINGULAIR [Concomitant]
     Active Substance: MONTELUKAST SODIUM
     Route: 048
  59. PREDNISONE. [Concomitant]
     Active Substance: PREDNISONE
     Dosage: 10.0MG UNKNOWN
     Route: 048
  60. PERCOCET [Concomitant]
     Active Substance: ACETAMINOPHEN\OXYCODONE HYDROCHLORIDE
     Dosage: 10/325
     Route: 048
  61. CYCLOBENZAPRINE. [Concomitant]
     Active Substance: CYCLOBENZAPRINE
     Dosage: 1.0MG UNKNOWN
     Route: 048
     Dates: start: 20161213
  62. JANUMET [Concomitant]
     Active Substance: METFORMIN HYDROCHLORIDE\SITAGLIPTIN PHOSPHATE
     Dosage: 1.0MG UNKNOWN
     Route: 048
     Dates: start: 20161213
  63. VENTOLIN HFA [Concomitant]
     Active Substance: ALBUTEROL SULFATE
     Dosage: 1.0MG UNKNOWN
     Route: 048
     Dates: start: 20161213
  64. BREOELLIPTA [Concomitant]
     Dosage: 1.0MG UNKNOWN
     Route: 048
     Dates: start: 20161213

REACTIONS (9)
  - Cardiac failure congestive [Fatal]
  - Acute coronary syndrome [Fatal]
  - Cardiac failure [Unknown]
  - Aortic stenosis [Unknown]
  - Aortic valve disease [Unknown]
  - Chronic obstructive pulmonary disease [Fatal]
  - Cardiac failure acute [Unknown]
  - Mitral valve incompetence [Unknown]
  - Acute respiratory failure [Unknown]

NARRATIVE: CASE EVENT DATE: 201701
